FAERS Safety Report 20228271 (Version 2)
Quarter: 2022Q1

REPORT INFORMATION
  Report Type: Spontaneous
  Country: TR (occurrence: TR)
  Receive Date: 20211224
  Receipt Date: 20220103
  Transmission Date: 20220423
  Serious: Yes (Other)
  Sender: FDA-Public Use
  Company Number: TR-BRISTOL-MYERS SQUIBB COMPANY-BMS-2021-140144

PATIENT

DRUGS (1)
  1. NIVOLUMAB [Suspect]
     Active Substance: NIVOLUMAB
     Indication: Non-small cell lung cancer metastatic
     Dosage: UNAVAILABLE
     Route: 065
     Dates: start: 20210910

REACTIONS (3)
  - Immune-mediated enterocolitis [Unknown]
  - Large intestinal ulcer [Unknown]
  - Haemorrhoids [Unknown]
